FAERS Safety Report 7638785-3 (Version None)
Quarter: 2011Q3

REPORT INFORMATION
  Report Type: 
  Country: None (occurrence: None)
  Receive Date: 20110721
  Receipt Date: 20110707
  Transmission Date: 20111222
  Serious: Yes (Other)
  Sender: FDA-Public Use
  Company Number: 2011-295

PATIENT
  Sex: Female

DRUGS (4)
  1. BUPIVACAINE HCL [Suspect]
     Dosage: MG, ONCE/HOUR, INTRATHECAL
     Route: 037
  2. MORPHINE SULFATE [Suspect]
     Dosage: MG, ONCE/HOUR, INTRATHECAL
     Route: 037
  3. PRIALT [Suspect]
     Dosage: UG, ONCE/HOUR, INTRATHECAL
     Route: 037
  4. DILAUDID [Suspect]
     Dosage: MG, ONCE/HOUR, INTRATHECAL
     Route: 037

REACTIONS (3)
  - DYSPNOEA [None]
  - CHEST PAIN [None]
  - VOMITING [None]
